FAERS Safety Report 4378085-0 (Version None)
Quarter: 2004Q2

REPORT INFORMATION
  Report Type: 
  Country: None (occurrence: None)
  Receive Date: 20040609
  Receipt Date: 20040526
  Transmission Date: 20050107
  Serious: Yes (Life-Threatening, Hospitalization, Other)
  Sender: FDA-Public Use
  Company Number: FR_040103500

PATIENT
  Age: 64 Year
  Sex: Male
  Weight: 65 kg

DRUGS (1)
  1. GEMZAR [Suspect]
     Indication: PANCREATIC CARCINOMA METASTATIC
     Dosage: 850 MG/1 OTHER
     Route: 042
     Dates: start: 20040122, end: 20040122

REACTIONS (13)
  - ABDOMINAL PAIN UPPER [None]
  - ALANINE AMINOTRANSFERASE INCREASED [None]
  - ASPARTATE AMINOTRANSFERASE INCREASED [None]
  - ASTHENIA [None]
  - BLOOD BILIRUBIN INCREASED [None]
  - CONDITION AGGRAVATED [None]
  - DIZZINESS [None]
  - GAMMA-GLUTAMYLTRANSFERASE INCREASED [None]
  - GENERAL PHYSICAL HEALTH DETERIORATION [None]
  - JAUNDICE [None]
  - MALAISE [None]
  - THROMBOCYTOPENIA [None]
  - WEIGHT DECREASED [None]
